FAERS Safety Report 6324639-1 (Version None)
Quarter: 2009Q3

REPORT INFORMATION
  Report Type: 
  Country: None (occurrence: None)
  Receive Date: 20090824
  Receipt Date: 20090428
  Transmission Date: 20100115
  Serious: No
  Sender: FDA-Public Use
  Company Number: US-ABBOTT-09P-163-0570405-00

PATIENT
  Sex: Female
  Weight: 136.2 kg

DRUGS (22)
  1. NIASPAN [Suspect]
     Indication: BLOOD CHOLESTEROL INCREASED
     Route: 048
     Dates: start: 20090414
  2. ALBUTEROL [Concomitant]
     Indication: ASTHMA
     Dosage: NEBULIZER
     Route: 055
  3. ADVAIR HFA [Concomitant]
     Indication: ASTHMA
     Route: 055
  4. FLONASE [Concomitant]
     Indication: HYPERSENSITIVITY
  5. PRISTIQ [Concomitant]
     Indication: DEPRESSION
  6. ASPIRIN [Concomitant]
     Indication: PROPHYLAXIS
  7. TRAZODONE HCL [Concomitant]
     Indication: INSOMNIA
  8. AMITIZA [Concomitant]
     Indication: IRRITABLE BOWEL SYNDROME
  9. TENORMIN [Concomitant]
     Indication: HYPERTENSION
  10. LISINOPRIL [Concomitant]
     Indication: HYPERTENSION
  11. LASIX [Concomitant]
     Indication: HYPERTENSION
  12. SKELAXIN [Concomitant]
     Indication: SURGERY
  13. LYRICA [Concomitant]
     Indication: NERVE INJURY
  14. LYRICA [Concomitant]
     Indication: SURGERY
  15. REQUIP [Concomitant]
     Indication: RESTLESS LEGS SYNDROME
  16. ZANTAC [Concomitant]
     Indication: GASTROOESOPHAGEAL REFLUX DISEASE
  17. DETROL LA [Concomitant]
     Indication: POLLAKIURIA
  18. VICODIN [Concomitant]
     Indication: BACK PAIN
  19. ZETIA [Concomitant]
     Indication: BLOOD CHOLESTEROL INCREASED
  20. SINGULAIR [Concomitant]
     Indication: ASTHMA
  21. KAPIDEX [Concomitant]
     Indication: GASTROOESOPHAGEAL REFLUX DISEASE
  22. ABILIFY [Concomitant]
     Indication: ANXIETY

REACTIONS (2)
  - ERYTHEMA [None]
  - PARAESTHESIA [None]
